FAERS Safety Report 14055786 (Version 1)
Quarter: 2017Q4

REPORT INFORMATION
  Report Type: Spontaneous
  Country: US (occurrence: US)
  Receive Date: 20171006
  Receipt Date: 20171006
  Transmission Date: 20180321
  Serious: Yes (Other)
  Sender: FDA-Public Use
  Company Number: US-NOVOPROD-566195

PATIENT
  Age: 79 Year
  Sex: Male
  Weight: 77.98 kg

DRUGS (4)
  1. TRESIBA FLEXTOUCH U200 [Suspect]
     Active Substance: INSULIN DEGLUDEC
     Dosage: 20-30 U, QD AM
     Route: 058
     Dates: start: 2017, end: 2017
  2. TRESIBA FLEXTOUCH U200 [Suspect]
     Active Substance: INSULIN DEGLUDEC
     Dosage: 40 U, QD AM
     Route: 058
     Dates: start: 201709
  3. TRESIBA FLEXTOUCH U200 [Suspect]
     Active Substance: INSULIN DEGLUDEC
     Dosage: 36 U, QD AM
     Route: 058
     Dates: start: 2017, end: 201709
  4. TRESIBA FLEXTOUCH U200 [Suspect]
     Active Substance: INSULIN DEGLUDEC
     Indication: TYPE 2 DIABETES MELLITUS
     Dosage: 5 U, QD AM
     Route: 058
     Dates: start: 201708, end: 2017

REACTIONS (2)
  - Intentional dose omission [Recovered/Resolved]
  - Dysentery [Not Recovered/Not Resolved]

NARRATIVE: CASE EVENT DATE: 201709
